FAERS Safety Report 6217449-7 (Version None)
Quarter: 2009Q2

REPORT INFORMATION
  Report Type: 
  Country: None (occurrence: None)
  Receive Date: 20090608
  Receipt Date: 20081020
  Transmission Date: 20091009
  Serious: No
  Sender: FDA-Public Use
  Company Number: A0753197A

PATIENT
  Sex: Female

DRUGS (3)
  1. WELLBUTRIN XL [Suspect]
     Indication: DRUG USE FOR UNKNOWN INDICATION
     Route: 048
  2. ALCOHOL [Suspect]
  3. CAFFEINE [Concomitant]

REACTIONS (6)
  - DISTURBANCE IN ATTENTION [None]
  - ENERGY INCREASED [None]
  - EUPHORIC MOOD [None]
  - FATIGUE [None]
  - MUSCLE TIGHTNESS [None]
  - TINNITUS [None]
